FAERS Safety Report 4301690-4 (Version None)
Quarter: 2004Q1

REPORT INFORMATION
  Report Type: 
  Country: None (occurrence: None)
  Receive Date: 20040219
  Receipt Date: 20040206
  Transmission Date: 20041129
  Serious: Yes (Death, Hospitalization)
  Sender: FDA-Public Use
  Company Number: 2004S1000019

PATIENT
  Age: 33 Year
  Sex: Female

DRUGS (17)
  1. CLOZAPINE [Suspect]
     Indication: PSYCHOTIC DISORDER
     Dosage: 200 MG MG BID
     Dates: start: 20031218, end: 20040101
  2. AZITHROMYCIN [Concomitant]
  3. CEPHALEXIN, DIVALPROEX SODIUM [Concomitant]
  4. FLUPHENAZINE [Concomitant]
  5. LEVOTHYROXINE SODIUM [Concomitant]
  6. LORAZEPAM [Concomitant]
  7. PSEUDOEPHEDRINE HCL [Concomitant]
  8. VENLAFAXINE HCL [Suspect]
  9. RISPERIDONE [Concomitant]
  10. CLONAZEPAM [Concomitant]
  11. FUROSEMIDE [Concomitant]
  12. BENZTROPINE MESYLATE [Concomitant]
  13. LANSOPRAZOLE [Concomitant]
  14. RANITIDINE [Concomitant]
  15. POLYETHYLENE GLYCOL [Concomitant]
  16. DOCUSATE CALCIUM [Concomitant]
  17. CLOTRIMAZOLE [Concomitant]

REACTIONS (4)
  - CARDIO-RESPIRATORY ARREST [None]
  - MYOCARDIAL HAEMORRHAGE [None]
  - MYOCARDITIS [None]
  - RESPIRATORY TRACT INFECTION [None]
